FAERS Safety Report 9569398 (Version 2)
Quarter: 2013Q3

REPORT INFORMATION
  Report Type: Spontaneous
  Country: US (occurrence: US)
  Receive Date: 20130930
  Receipt Date: 20130930
  Transmission Date: 20140515
  Serious: Yes (Other)
  Sender: FDA-Public Use
  Company Number: US-AMGEN-USASP2013008803

PATIENT
  Age: 75 Year
  Sex: Female
  Weight: 59.86 kg

DRUGS (9)
  1. ENBREL [Suspect]
     Indication: PRODUCT USED FOR UNKNOWN INDICATION
     Dosage: 50 MG ONCE A WEEK
     Route: 058
  2. METHOTREXATE [Concomitant]
     Dosage: 2.5 MG, UNK
  3. ALENDRONATE [Concomitant]
     Dosage: 10 MG, UNK
  4. MOEXIPRIL [Concomitant]
     Dosage: 15 MG, UNK
  5. PREDNISONE [Concomitant]
     Dosage: 10 MG, UNK
  6. MULTIVITAMINS, PLAIN [Concomitant]
     Dosage: UNK
  7. CALCIUM [Concomitant]
     Dosage: 500 UNK, UNK
  8. OMEGA-3                            /01866101/ [Concomitant]
     Dosage: UNK
  9. ASPIRIN [Concomitant]
     Dosage: 81 MG, UNK

REACTIONS (1)
  - Urinary tract infection [Unknown]
